FAERS Safety Report 10976016 (Version 1)
Quarter: 2015Q2

REPORT INFORMATION
  Report Type: Spontaneous
  Country: NO (occurrence: NO)
  Receive Date: 20150401
  Receipt Date: 20150401
  Transmission Date: 20150821
  Serious: Yes (Hospitalization)
  Sender: FDA-Public Use
  Company Number: NO-009507513-1503NOR014880

PATIENT
  Age: 29 Year
  Sex: Female

DRUGS (1)
  1. MERCILON 28 [Suspect]
     Active Substance: DESOGESTREL\ETHINYL ESTRADIOL
     Indication: CONTRACEPTION
     Dosage: UNK, QD
     Route: 048

REACTIONS (1)
  - Cerebellar infarction [Recovering/Resolving]

NARRATIVE: CASE EVENT DATE: 20150311
